FAERS Safety Report 5846879-8 (Version None)
Quarter: 2008Q3

REPORT INFORMATION
  Report Type: 
  Country: None (occurrence: None)
  Receive Date: 20080815
  Receipt Date: 20080807
  Transmission Date: 20090109
  Serious: Yes (Other)
  Sender: FDA-Public Use
  Company Number: US-PFIZER INC-2008066387

PATIENT
  Sex: Male
  Weight: 105.2 kg

DRUGS (2)
  1. NICOTROL [Suspect]
     Indication: SMOKING CESSATION THERAPY
  2. ALBUTEROL [Concomitant]
     Route: 048

REACTIONS (4)
  - BLOOD CHOLESTEROL [None]
  - BLOOD PRESSURE [None]
  - TYPE 2 DIABETES MELLITUS [None]
  - WHEEZING [None]
